FAERS Safety Report 14032430 (Version 1)
Quarter: 2017Q4

REPORT INFORMATION
  Report Type: Spontaneous
  Country: LV (occurrence: LV)
  Receive Date: 20171002
  Receipt Date: 20171002
  Transmission Date: 20180321
  Serious: Yes (Hospitalization, Other)
  Sender: FDA-Public Use
  Company Number: LV-BAYER-2017-183221

PATIENT
  Age: 73 Year
  Sex: Female
  Weight: 88 kg

DRUGS (5)
  1. ACETYLSALICYLIC ACID({=100 MG) [Suspect]
     Active Substance: ASPIRIN
     Indication: ATRIAL FIBRILLATION
     Dosage: UNK
  2. ENOXAPARIN [Interacting]
     Active Substance: ENOXAPARIN
     Dosage: 0.4 ML, UNK
     Route: 058
  3. MORPHINE [Concomitant]
     Active Substance: MORPHINE
     Dosage: UNK
  4. ENOXAPARIN [Interacting]
     Active Substance: ENOXAPARIN
     Dosage: 40 MG, UNK
     Route: 058
  5. BUPIVACAINE. [Concomitant]
     Active Substance: BUPIVACAINE
     Dosage: UNK

REACTIONS (8)
  - Cauda equina syndrome [Recovered/Resolved with Sequelae]
  - Monoparesis [Not Recovered/Not Resolved]
  - Post procedural fistula [None]
  - Labelled drug-drug interaction medication error [None]
  - Drug administration error [None]
  - Spinal subdural haematoma [Recovered/Resolved with Sequelae]
  - Transient ischaemic attack [Recovered/Resolved]
  - Bladder dysfunction [Not Recovered/Not Resolved]
